FAERS Safety Report 12978207 (Version 2)
Quarter: 2016Q4

REPORT INFORMATION
  Report Type: Spontaneous
  Country: GB (occurrence: GB)
  Receive Date: 20161128
  Receipt Date: 20161226
  Transmission Date: 20170207
  Serious: Yes (Other)
  Sender: FDA-Public Use
  Company Number: GB-ASTELLAS-2016US045951

PATIENT
  Age: 10 Decade
  Sex: Male

DRUGS (2)
  1. XTANDI [Suspect]
     Active Substance: ENZALUTAMIDE
     Indication: PRODUCT USED FOR UNKNOWN INDICATION
     Route: 065
  2. XTANDI [Suspect]
     Active Substance: ENZALUTAMIDE
     Dosage: UNK, UNKNOWN FREQ.
     Route: 065

REACTIONS (6)
  - Activities of daily living impaired [Unknown]
  - Anxiety [Unknown]
  - Malignant neoplasm progression [Unknown]
  - Gastric disorder [Unknown]
  - Fatigue [Unknown]
  - Nausea [Unknown]
